FAERS Safety Report 13869240 (Version 1)
Quarter: 2017Q3

REPORT INFORMATION
  Report Type: Spontaneous
  Country: AU (occurrence: AU)
  Receive Date: 20170815
  Receipt Date: 20170815
  Transmission Date: 20171127
  Serious: Yes (Hospitalization, Other)
  Sender: FDA-Public Use
  Company Number: AU-IPSEN BIOPHARMACEUTICALS, INC.-2017-09167

PATIENT
  Sex: Male

DRUGS (5)
  1. SOMATULINE [Suspect]
     Active Substance: LANREOTIDE ACETATE
     Indication: ACROMEGALY
     Dosage: 15 (UNIT NOT REPORTED)
     Route: 065
  2. CORTISONE [Concomitant]
     Active Substance: CORTISONE\HYDROCORTISONE
     Indication: CORTISOL DEFICIENCY
  3. SOMATULINE [Suspect]
     Active Substance: LANREOTIDE ACETATE
     Dosage: 20 (UNIT NOT REPORTED)
     Route: 065
  4. SOMATULINE [Suspect]
     Active Substance: LANREOTIDE ACETATE
     Dosage: 30 (UNIT NOT REPORTED)
     Route: 065
  5. SANDOSTATIN [Suspect]
     Active Substance: OCTREOTIDE ACETATE
     Indication: ACROMEGALY

REACTIONS (18)
  - Nerve injury [Not Recovered/Not Resolved]
  - Drug dose omission [Unknown]
  - Wrong technique in product usage process [Unknown]
  - Cortisol deficiency [Unknown]
  - Immunodeficiency [Unknown]
  - Drug ineffective [Unknown]
  - Inappropriate schedule of drug administration [Unknown]
  - Cerebral haemorrhage [Recovered/Resolved]
  - Hypopituitarism [Unknown]
  - Fatigue [Unknown]
  - Incorrect dose administered [Unknown]
  - Coma [Recovered/Resolved]
  - Brain injury [Unknown]
  - Injection site mass [Unknown]
  - Weight decreased [Unknown]
  - Injection site pain [Unknown]
  - Aneurysm [Recovered/Resolved]
  - Neuralgia [Not Recovered/Not Resolved]

NARRATIVE: CASE EVENT DATE: 2012
